FAERS Safety Report 23474073 (Version 1)
Quarter: 2024Q1

REPORT INFORMATION
  Report Type: Other
  Country: ES (occurrence: ES)
  Receive Date: 20240204
  Receipt Date: 20240204
  Transmission Date: 20240410
  Serious: Yes (Hospitalization)
  Sender: FDA-Public Use
  Company Number: ES-DEXPHARM-20240201

PATIENT
  Age: 79 Year
  Sex: Female

DRUGS (7)
  1. OMEPRAZOLE [Suspect]
     Active Substance: OMEPRAZOLE
     Dosage: 20 MG DAILY
  2. ENALAPRIL [Concomitant]
     Active Substance: ENALAPRIL
     Dosage: 30 MG DAILY
  3. METFORMIN [Concomitant]
     Active Substance: METFORMIN HYDROCHLORIDE
     Dosage: 850 MG DAILY FOR 2 YEARS
  4. VITAMIN D3 [Concomitant]
     Active Substance: CHOLECALCIFEROL
     Dosage: 0.266 MG MONTHLY FOR 4 YEARS
  5. SIMVASTATIN [Concomitant]
     Active Substance: SIMVASTATIN
     Dosage: 20 MG DAILY FOR 9 YEARS
  6. LEVOTHYROXINE [Concomitant]
     Active Substance: LEVOTHYROXINE\LEVOTHYROXINE SODIUM
     Dosage: 75 MG DAILY FOR 8 YEARS
  7. AMLODIPINE [Concomitant]
     Active Substance: AMLODIPINE BESYLATE
     Dosage: 5 MG DAILY FOR 9 YEARS

REACTIONS (4)
  - Type IV hypersensitivity reaction [Recovered/Resolved]
  - Reaction to excipient [Recovered/Resolved]
  - Tubulointerstitial nephritis [Recovered/Resolved]
  - Anaemia [Unknown]
